FAERS Safety Report 4785950-9 (Version None)
Quarter: 2005Q3

REPORT INFORMATION
  Report Type: 
  Country: None (occurrence: None)
  Receive Date: 20050929
  Receipt Date: 20050921
  Transmission Date: 20060218
  Serious: Yes (Other)
  Sender: FDA-Public Use
  Company Number: 2005131108

PATIENT
  Age: 67 Year
  Sex: Male
  Weight: 92.9874 kg

DRUGS (7)
  1. LIPITOR [Suspect]
     Indication: BLOOD CHOLESTEROL INCREASED
  2. GEMFIBROZIL [Suspect]
     Indication: BLOOD CHOLESTEROL INCREASED
     Dosage: 1200 MG (600 MG, 1 IN 1 D)
  3. ZMAX [Suspect]
     Indication: COUGH
     Dosage: 2 GRAM (2 GRAM, ONCE)
     Dates: start: 20050913, end: 20050913
  4. ZMAX [Suspect]
     Indication: INCREASED UPPER AIRWAY SECRETION
     Dosage: 2 GRAM (2 GRAM, ONCE)
     Dates: start: 20050913, end: 20050913
  5. ALLOPURINOL [Concomitant]
  6. TAMSULOSIN HCL [Concomitant]
  7. MOEXIPRIL (MODXIPRIL) [Concomitant]

REACTIONS (5)
  - ASTHENIA [None]
  - COUGH [None]
  - INCREASED UPPER AIRWAY SECRETION [None]
  - LUNG NEOPLASM [None]
  - PAIN IN EXTREMITY [None]
